FAERS Safety Report 9919950 (Version 2)
Quarter: 2014Q1

REPORT INFORMATION
  Report Type: Spontaneous
  Country: US (occurrence: US)
  Receive Date: 20140224
  Receipt Date: 20140305
  Transmission Date: 20141002
  Serious: Yes (Death, Hospitalization)
  Sender: FDA-Public Use
  Company Number: PHEH2014US003434

PATIENT
  Sex: Female

DRUGS (2)
  1. EXJADE [Suspect]
     Indication: MYELODYSPLASTIC SYNDROME
     Dosage: 500 MG, TID
     Route: 048
  2. PREDNISONE [Concomitant]
     Dosage: UNK UKN, UNK

REACTIONS (2)
  - Procedural complication [Fatal]
  - Haematocrit decreased [Unknown]
